FAERS Safety Report 20702148 (Version 1)
Quarter: 2022Q2

REPORT INFORMATION
  Report Type: Spontaneous
  Country: US (occurrence: None)
  Receive Date: 20220412
  Receipt Date: 20220412
  Transmission Date: 20220721
  Serious: Yes (Death)
  Sender: FDA-Public Use
  Company Number: None

PATIENT
  Age: 70 Year
  Sex: Female

DRUGS (10)
  1. PROMACTA [Suspect]
     Active Substance: ELTROMBOPAG OLAMINE
     Indication: Aplastic anaemia
     Dosage: 1 TABLET ONCE DAILY BY MOUTH
     Route: 048
     Dates: start: 20220203, end: 20220327
  2. PROMACTA [Suspect]
     Active Substance: ELTROMBOPAG OLAMINE
     Indication: Aplastic anaemia
     Dosage: 1 TABLET ONCE DAILY BY MOUTH?
     Route: 048
  3. XARELTO [Concomitant]
     Active Substance: RIVAROXABAN
  4. FAMOTIDINE [Concomitant]
     Active Substance: FAMOTIDINE
  5. IPRATROPI/ALB 0.5/3MG INH SL 30X3ML [Concomitant]
  6. METOPROLOL TARTRATE [Concomitant]
     Active Substance: METOPROLOL TARTRATE
  7. PROMACTA 25 MG TABLETS [Concomitant]
  8. VITAMIN D 2,000IU TABLETS [Concomitant]
  9. ADVIL 200MG CAPSULES [Concomitant]
  10. TYLENOL 325MG TABLETS [Concomitant]

REACTIONS (1)
  - Death [None]

NARRATIVE: CASE EVENT DATE: 20220327
